FAERS Safety Report 26189897 (Version 1)
Quarter: 2025Q4

REPORT INFORMATION
  Report Type: Spontaneous
  Country: MA (occurrence: MA)
  Receive Date: 20251223
  Receipt Date: 20251223
  Transmission Date: 20260117
  Serious: Yes (Death)
  Sender: CHEPLAPHARM
  Company Number: MA-CHEPLA-2025014314

PATIENT
  Age: 7 Month
  Sex: Female
  Weight: 5.1999 kg

DRUGS (2)
  1. GANCICLOVIR [Suspect]
     Active Substance: GANCICLOVIR
     Indication: Cytomegalovirus infection
  2. FOSCARNET [Suspect]
     Active Substance: FOSCARNET
     Indication: Cytomegalovirus infection

REACTIONS (4)
  - Pneumonia cytomegaloviral [Fatal]
  - Respiratory failure [Fatal]
  - General physical health deterioration [Fatal]
  - Off label use [Unknown]
